FAERS Safety Report 6753066-8 (Version None)
Quarter: 2010Q2

REPORT INFORMATION
  Report Type: 
  Country: None (occurrence: None)
  Receive Date: 20100603
  Receipt Date: 20100521
  Transmission Date: 20101027
  Serious: Yes (Other)
  Sender: FDA-Public Use
  Company Number: PHHY2010CA31235

PATIENT
  Sex: Male

DRUGS (3)
  1. CLOZARIL [Suspect]
     Indication: SCHIZOPHRENIA
     Dosage: 275 MG DAILY
     Route: 048
     Dates: start: 20060101
  2. CITALOPRAM [Concomitant]
     Dosage: 80 MG
     Route: 048
  3. RISPERDAL [Concomitant]
     Dosage: 1 MG
     Route: 048

REACTIONS (4)
  - HAEMOGLOBIN DECREASED [None]
  - PANCYTOPENIA [None]
  - PLATELET COUNT DECREASED [None]
  - WHITE BLOOD CELL COUNT ABNORMAL [None]
